FAERS Safety Report 6790079-4 (Version None)
Quarter: 2010Q2

REPORT INFORMATION
  Report Type: 
  Country: None (occurrence: None)
  Receive Date: 20100624
  Receipt Date: 20100524
  Transmission Date: 20101027
  Serious: No
  Sender: FDA-Public Use
  Company Number: US-BAYER-201015987BCC

PATIENT
  Age: 39 Year
  Sex: Female
  Weight: 41 kg

DRUGS (1)
  1. ALEVE (CAPLET) [Suspect]
     Indication: DYSMENORRHOEA
     Dosage: BOTTLE COUNT UNKNOWN
     Route: 048
     Dates: start: 20100519, end: 20100522

REACTIONS (2)
  - ORAL DISCOMFORT [None]
  - TONGUE DISCOLOURATION [None]
